FAERS Safety Report 5054907-5 (Version None)
Quarter: 2006Q3

REPORT INFORMATION
  Report Type: 
  Country: None (occurrence: None)
  Receive Date: 20060719
  Receipt Date: 20060302
  Transmission Date: 20061208
  Serious: Yes (Other)
  Sender: FDA-Public Use
  Company Number: GB-NOVOPROD-251275

PATIENT
  Age: 69 Year
  Sex: Male
  Weight: 107 kg

DRUGS (6)
  1. NORDITROPIN SIMPLEXX [Suspect]
     Indication: GROWTH HORMONE DEFICIENCY
     Dosage: .2 MG, QD
     Route: 030
     Dates: start: 20051201, end: 20060208
  2. HYDROCORTISONE [Concomitant]
     Dosage: 10 MG, QD
     Route: 048
  3. THYROXINE ^APS^ [Concomitant]
     Dosage: 100 UG, QD
     Route: 048
  4. AMLODIPINE [Concomitant]
     Dosage: 10 MG, QD
     Route: 048
  5. ROSUVASTATIN [Concomitant]
     Dosage: 10 MG, QD
     Route: 048
  6. SUSTANON                                /NET/ [Concomitant]
     Dosage: 250 MG, QD
     Route: 030

REACTIONS (4)
  - ARTHRALGIA [None]
  - DYSPNOEA [None]
  - LETHARGY [None]
  - RASH MACULAR [None]
